FAERS Safety Report 10255393 (Version 1)
Quarter: 2014Q2

REPORT INFORMATION
  Report Type: Spontaneous
  Country: US (occurrence: None)
  Receive Date: 20140620
  Receipt Date: 20140620
  Transmission Date: 20141212
  Serious: Yes (Death)
  Sender: FDA-Public Use
  Company Number: 2372979

PATIENT
  Age: 86 Year
  Sex: Female
  Weight: 88.5 kg

DRUGS (1)
  1. HEPARIN SODIUM AND 0.9% SODIUM CHLORIDE INJECTION [Suspect]
     Indication: DIAGNOSTIC PROCEDURE
     Dosage: 1000 UNITS/ 500 ML+ 2 UNITS/ML, UNKNOWN

REACTIONS (1)
  - Thrombosis in device [None]
